FAERS Safety Report 9903152 (Version 2)
Quarter: 2014Q1

REPORT INFORMATION
  Report Type: Report from Study
  Country: US (occurrence: US)
  Receive Date: 20140217
  Receipt Date: 20140217
  Transmission Date: 20141002
  Serious: Yes (Hospitalization)
  Sender: FDA-Public Use
  Company Number: US-ABBVIE-13P-163-1184319-00

PATIENT
  Age: 73 Year
  Sex: Female

DRUGS (1)
  1. HUMIRA [Suspect]
     Indication: CROHN^S DISEASE
     Route: 058
     Dates: start: 20131209, end: 20131209

REACTIONS (4)
  - Pain [Unknown]
  - Crohn^s disease [Recovering/Resolving]
  - Dehydration [Recovered/Resolved]
  - Pyrexia [Unknown]
